FAERS Safety Report 25342571 (Version 1)
Quarter: 2025Q2

REPORT INFORMATION
  Report Type: Spontaneous
  Country: US (occurrence: US)
  Receive Date: 20250521
  Receipt Date: 20250521
  Transmission Date: 20250716
  Serious: No
  Sender: CATALYST PHARMA
  Company Number: US-CATALYST PHARMACEUTICALS-US-CATA-25-00607

PATIENT
  Age: 17 Year
  Sex: Male
  Weight: 72.562 kg

DRUGS (6)
  1. AGAMREE [Suspect]
     Active Substance: VAMOROLONE
     Indication: Duchenne muscular dystrophy
     Dosage: 7.5 ML ONCE DAILY REDUCED TO 5 ML DAILY
     Route: 048
     Dates: start: 20240912, end: 202504
  2. AGAMREE [Suspect]
     Active Substance: VAMOROLONE
     Dosage: 5 ML DAILY
     Route: 048
     Dates: start: 20250423
  3. EPLERENONE [Concomitant]
     Active Substance: EPLERENONE
     Indication: Cardiovascular event prophylaxis
     Dosage: 25 MG DAILY
     Route: 065
  4. LOSARTAN [Concomitant]
     Active Substance: LOSARTAN
     Indication: Cardiovascular event prophylaxis
     Dosage: 25 MG DAILY
     Route: 065
  5. ATALUREN [Concomitant]
     Active Substance: ATALUREN
     Indication: Duchenne muscular dystrophy
     Dosage: 750 MG TWICE A DAY
     Route: 065
  6. ATALUREN [Concomitant]
     Active Substance: ATALUREN
     Dosage: 1750 MG AT BEDTIME
     Route: 065

REACTIONS (1)
  - Weight increased [Not Recovered/Not Resolved]

NARRATIVE: CASE EVENT DATE: 20241001
